FAERS Safety Report 4612071-8 (Version None)
Quarter: 2005Q1

REPORT INFORMATION
  Report Type: 
  Country: None (occurrence: None)
  Receive Date: 20050308
  Receipt Date: 20041129
  Transmission Date: 20050727
  Serious: Yes (Other)
  Sender: FDA-Public Use
  Company Number: 2004UW24446

PATIENT
  Age: 71 Year
  Sex: Male
  Weight: 64.41 kg

DRUGS (6)
  1. CRESTOR [Suspect]
     Indication: BLOOD CHOLESTEROL INCREASED
     Dosage: 10 MG PO
     Route: 048
     Dates: start: 20040101
  2. NORVASC [Concomitant]
  3. PLAVIX [Concomitant]
  4. TOPROL-XL [Concomitant]
  5. ACETYL SALICYLIC ACID USP BAT [Concomitant]
  6. IMDUR [Concomitant]

REACTIONS (1)
  - JOINT SWELLING [None]
